FAERS Safety Report 25601457 (Version 1)
Quarter: 2025Q3

REPORT INFORMATION
  Report Type: Spontaneous
  Country: US (occurrence: None)
  Receive Date: 20250723
  Receipt Date: 20250723
  Transmission Date: 20251021
  Serious: Yes (Disabling)
  Sender: FDA-CTU
  Company Number: None

PATIENT
  Age: 29 Year
  Sex: Female
  Weight: 63 kg

DRUGS (5)
  1. LEVAQUIN [Suspect]
     Active Substance: LEVOFLOXACIN
     Indication: Abdominal abscess
     Route: 048
     Dates: start: 20250620, end: 20250703
  2. LEVAQUIN [Suspect]
     Active Substance: LEVOFLOXACIN
     Indication: Crohn^s disease
  3. Wellbutrin 300 mg daily [Concomitant]
  4. Prednisone Taper daily- 40mg x 1wk, 30mg x 1 wk, 20mg x 1 wk, 10mg x [Concomitant]
  5. Flagyl TID 500mg [Concomitant]

REACTIONS (15)
  - Tendonitis [None]
  - Hypoaesthesia [None]
  - Arthralgia [None]
  - Joint swelling [None]
  - Erythema [None]
  - Gait inability [None]
  - Pain [None]
  - Fall [None]
  - Muscular weakness [None]
  - Dysstasia [None]
  - Mobility decreased [None]
  - Joint range of motion decreased [None]
  - Gait disturbance [None]
  - Joint instability [None]
  - Joint stiffness [None]

NARRATIVE: CASE EVENT DATE: 20250701
